FAERS Safety Report 8283813-8 (Version None)
Quarter: 2012Q2

REPORT INFORMATION
  Report Type: 
  Country: None (occurrence: None)
  Receive Date: 20120413
  Receipt Date: 20111130
  Transmission Date: 20120825
  Serious: Yes (Other)
  Sender: FDA-Public Use
  Company Number: US-ASTRAZENECA-2011SE50757

PATIENT
  Age: 68 Year
  Sex: Female
  Weight: 95.3 kg

DRUGS (8)
  1. MIRALAX [Concomitant]
  2. PROGESTERONE [Concomitant]
  3. CRESTOR [Suspect]
     Indication: BLOOD CHOLESTEROL ABNORMAL
     Route: 048
  4. TEMAZEPAM [Concomitant]
  5. NEXIUM [Suspect]
     Indication: GASTROOESOPHAGEAL REFLUX DISEASE
     Route: 048
  6. ASTRA [Concomitant]
  7. DIATOL LA [Concomitant]
  8. TRAZODONE HCL [Concomitant]

REACTIONS (3)
  - HIATUS HERNIA [None]
  - MASS [None]
  - CHOLELITHIASIS [None]
